FAERS Safety Report 4474979-6 (Version None)
Quarter: 2004Q3

REPORT INFORMATION
  Report Type: 
  Country: None (occurrence: None)
  Receive Date: 20040923
  Receipt Date: 20040628
  Transmission Date: 20050211
  Serious: No
  Sender: FDA-Public Use
  Company Number: USA040671309

PATIENT
  Age: 84 Year
  Sex: Female

DRUGS (8)
  1. FORTEO [Suspect]
     Indication: OSTEOPOROSIS
     Dosage: 20 UG DAY
  2. EVISTA [Suspect]
     Indication: OSTEOPOROSIS
  3. CLARITIN [Concomitant]
  4. PREVACID [Concomitant]
  5. CAPTOPRIL (CAPTOPRIL BIOCHEMIE) [Concomitant]
  6. GEMFIBROZIL [Concomitant]
  7. NAPROSYN (NAPROXEN MEPHA) [Concomitant]
  8. CALTRATE (CALCIUM CARBONATE) [Concomitant]

REACTIONS (2)
  - BACK PAIN [None]
  - DYSPNOEA [None]
